FAERS Safety Report 23130295 (Version 1)
Quarter: 2023Q4

REPORT INFORMATION
  Report Type: Spontaneous
  Country: CZ (occurrence: CZ)
  Receive Date: 20231031
  Receipt Date: 20231031
  Transmission Date: 20240109
  Serious: Yes (Life-Threatening, Hospitalization, Other)
  Sender: FDA-Public Use
  Company Number: None

PATIENT
  Age: 74 Year
  Sex: Male
  Weight: 80 kg

DRUGS (6)
  1. YERVOY [Suspect]
     Active Substance: IPILIMUMAB
     Indication: Renal neoplasm
     Dosage: IPILIMUMAB 1 MG/KG EVERY 24 DAYS, TOTAL DOSAGE OF 4 CYCLES
     Route: 042
     Dates: start: 20230628, end: 20230830
  2. OPDIVO [Suspect]
     Active Substance: NIVOLUMAB
     Indication: Renal neoplasm
     Dosage: NIVOLUMAB 3MG/KG EVERY 24 DAYS, TOTAL DOSAGE 4 CYCLES
     Route: 042
     Dates: start: 20230628, end: 20230830
  3. XARELTO [Concomitant]
     Active Substance: RIVAROXABAN
     Indication: Product used for unknown indication
     Dosage: 1-0-0
  4. FUROSEMIDE [Concomitant]
     Active Substance: FUROSEMIDE
     Indication: Product used for unknown indication
     Dosage: 1/2-0-0
  5. ISOPTIN SR [Concomitant]
     Active Substance: VERAPAMIL HYDROCHLORIDE
     Indication: Product used for unknown indication
     Dosage: 1/2-0-0
  6. TORVACARD NEO [Concomitant]
     Indication: Product used for unknown indication
     Dosage: 0-0-1

REACTIONS (6)
  - Myalgia [Recovering/Resolving]
  - Decreased appetite [Recovering/Resolving]
  - Hypothyroidism [Recovering/Resolving]
  - Asthenia [Recovering/Resolving]
  - Fatigue [Recovering/Resolving]
  - Off label use [Unknown]

NARRATIVE: CASE EVENT DATE: 20231004
